FAERS Safety Report 5476425-2 (Version None)
Quarter: 2007Q4

REPORT INFORMATION
  Report Type: 
  Country: None (occurrence: None)
  Receive Date: 20071003
  Receipt Date: 20070921
  Transmission Date: 20080405
  Serious: Yes (Other)
  Sender: FDA-Public Use
  Company Number: US-PFIZER INC-2007080576

PATIENT
  Sex: Female
  Weight: 58.1 kg

DRUGS (6)
  1. CHANTIX [Interacting]
     Indication: SMOKING CESSATION THERAPY
  2. PAXIL [Interacting]
  3. CYMBALTA [Suspect]
     Indication: DEPRESSED MOOD
     Dates: start: 20070912, end: 20070917
  4. VITAMIN B-12 [Concomitant]
  5. OMEGA 3 [Concomitant]
     Dosage: DAILY DOSE:3000MG
  6. GINKO BILOBA [Concomitant]

REACTIONS (11)
  - BIPOLAR DISORDER [None]
  - DEPRESSED MOOD [None]
  - DRUG INTERACTION [None]
  - FOOD CRAVING [None]
  - NAUSEA [None]
  - NEURODERMATITIS [None]
  - OBSESSIVE-COMPULSIVE DISORDER [None]
  - SKIN DISORDER [None]
  - UNEVALUABLE EVENT [None]
  - URINARY TRACT DISORDER [None]
  - WEIGHT INCREASED [None]
